FAERS Safety Report 24432256 (Version 1)
Quarter: 2024Q4

REPORT INFORMATION
  Report Type: Spontaneous
  Country: US (occurrence: US)
  Receive Date: 20241014
  Receipt Date: 20241014
  Transmission Date: 20250115
  Serious: No
  Sender: NOBELPHARMA AMERICA, LLC
  Company Number: US-Nobelpharma America, LLC-NPA-2024-01764

PATIENT
  Sex: Female

DRUGS (10)
  1. HYFTOR [Suspect]
     Active Substance: SIROLIMUS
     Indication: Angiofibroma
     Dosage: CLEANSE FACE WITH MILD CLEANSER THEN APPLY 1.25 CM TWICE A DAY TO FACIAL ANGIOFIBROMAS
     Dates: start: 20240329
  2. ARIPIPRAZOLE [Concomitant]
     Active Substance: ARIPIPRAZOLE
  3. ATIVAN [Concomitant]
     Active Substance: LORAZEPAM
  4. CLONIDINE [Concomitant]
     Active Substance: CLONIDINE
  5. EPIDIOLEX [Concomitant]
     Active Substance: CANNABIDIOL
     Dosage: 100 MG/ML
  6. PROGESTERONE [Concomitant]
     Active Substance: PROGESTERONE
  7. SERTRALINE [Concomitant]
     Active Substance: SERTRALINE HYDROCHLORIDE
  8. TRAZODONE [Concomitant]
     Active Substance: TRAZODONE HYDROCHLORIDE
  9. VITAMIN D [Concomitant]
     Active Substance: VITAMIN D NOS
  10. XCOPRI [Concomitant]
     Active Substance: CENOBAMATE
     Dosage: PAK 12.5-25

REACTIONS (1)
  - Acne [Unknown]
